FAERS Safety Report 25469358 (Version 1)
Quarter: 2025Q2

REPORT INFORMATION
  Report Type: Report from Study
  Country: GB (occurrence: GB)
  Receive Date: 20250623
  Receipt Date: 20250623
  Transmission Date: 20250716
  Serious: Yes (Other)
  Sender: TEVA
  Company Number: GB-TEVA-VS-3342834

PATIENT
  Age: 22 Year
  Sex: Female

DRUGS (1)
  1. AJOVY [Suspect]
     Active Substance: FREMANEZUMAB-VFRM
     Indication: Migraine
     Dosage: 225MG/1.5ML
     Route: 058

REACTIONS (3)
  - Seizure [Unknown]
  - Intentional product misuse [Unknown]
  - Migraine [Unknown]

NARRATIVE: CASE EVENT DATE: 20250501
